FAERS Safety Report 8960516 (Version 5)
Quarter: 2013Q1

REPORT INFORMATION
  Report Type: Spontaneous
  Country: DK (occurrence: None)
  Receive Date: 20121203
  Receipt Date: 20130212
  Transmission Date: 20140127
  Serious: Yes (Death, Other)
  Sender: FDA-Public Use
  Company Number: 2012MA013612

PATIENT
  Age: 64 Year
  Sex: Female

DRUGS (10)
  1. VINORELBINE [Suspect]
     Indication: PRODUCT USED FOR UNKNOWN INDICATION
  2. PACLITAXEL [Suspect]
     Indication: PRODUCT USED FOR UNKNOWN INDICATION
  3. LETROZOLE [Suspect]
     Indication: PRODUCT USED FOR UNKNOWN INDICATION
  4. TRASTUZUMAB [Suspect]
     Indication: BREAST CANCER
  5. XELODA [Suspect]
     Indication: PRODUCT USED FOR UNKNOWN INDICATION
  6. ERIBULIN (NO PREF. NAME) [Suspect]
     Indication: PRODUCT USED FOR UNKNOWN INDICATION
  7. LAPATINIB [Suspect]
     Indication: PRODUCT USED FOR UNKNOWN INDICATION
  8. EPIRUBICIN [Concomitant]
  9. CYCLOPHOSPHAMIDE [Concomitant]
  10. TAXOTERE [Concomitant]

REACTIONS (6)
  - Malignant neoplasm progression [None]
  - Superior vena cava syndrome [None]
  - Breast cancer female [None]
  - Metastases to bone [None]
  - Pelvic fracture [None]
  - Sensory disturbance [None]
